FAERS Safety Report 9386041 (Version 1)
Quarter: 2013Q3

REPORT INFORMATION
  Report Type: Report from Study
  Country: FR (occurrence: FR)
  Receive Date: 20130705
  Receipt Date: 20130705
  Transmission Date: 20140515
  Serious: Yes (Other)
  Sender: FDA-Public Use
  Company Number: PHHY2013FR069844

PATIENT
  Age: 76 Year
  Sex: Female

DRUGS (16)
  1. ACLASTA/ZOLEDRONATE [Suspect]
     Indication: OSTEOPOROSIS
     Dosage: UNK
     Route: 042
     Dates: start: 20110128
  2. TRIMETAZIDINE [Concomitant]
     Dosage: UNK
     Dates: start: 2011, end: 2012
  3. AMLODIPINE [Concomitant]
     Dosage: UNK
     Dates: start: 2011, end: 201108
  4. VITAMIN B12 [Concomitant]
     Dosage: UNK
     Dates: start: 2009
  5. LECTIL [Concomitant]
     Dosage: UNK
     Dates: start: 2000
  6. ISKEDYL [Concomitant]
     Dosage: UNK
     Dates: start: 2007, end: 201102
  7. ISKEDYL [Concomitant]
     Dosage: UNK
     Dates: end: 201201
  8. COAPROVEL [Concomitant]
     Dosage: UNK
     Dates: start: 2003, end: 201201
  9. UVEDOSE [Concomitant]
     Dosage: UNK
     Dates: start: 2009, end: 201104
  10. UVEDOSE [Concomitant]
     Dosage: UNK
  11. EUPHYTOSE [Concomitant]
     Dosage: UNK
     Dates: start: 2010, end: 201107
  12. ARTHROCINE [Concomitant]
     Dosage: UNK
     Dates: start: 2012
  13. FORTZAAR [Concomitant]
     Dosage: UNK
     Dates: start: 2012
  14. ADROVANCE [Concomitant]
     Dosage: UNK
     Dates: start: 2012
  15. ADROVANCE [Concomitant]
     Dosage: UNK
     Dates: start: 201205
  16. OMEPRAZOLE [Concomitant]
     Dosage: UNK
     Dates: start: 2012

REACTIONS (2)
  - Loss of consciousness [Not Recovered/Not Resolved]
  - Fall [Not Recovered/Not Resolved]
